FAERS Safety Report 8607236 (Version 4)
Quarter: 2014Q1

REPORT INFORMATION
  Report Type: Spontaneous
  Country: US (occurrence: US)
  Receive Date: 20120611
  Receipt Date: 20140225
  Transmission Date: 20141002
  Serious: Yes (Hospitalization, Disabling, Other)
  Sender: FDA-Public Use
  Company Number: US-ASTRAZENECA-2012SE34626

PATIENT
  Age: 55 Year
  Sex: Male
  Weight: 73.9 kg

DRUGS (24)
  1. NEXIUM [Suspect]
     Indication: GASTROOESOPHAGEAL REFLUX DISEASE
     Route: 048
     Dates: start: 2000, end: 2008
  2. NEXIUM [Suspect]
     Indication: GASTROOESOPHAGEAL REFLUX DISEASE
     Route: 048
     Dates: start: 2000, end: 2008
  3. NEXIUM [Suspect]
     Indication: GASTROOESOPHAGEAL REFLUX DISEASE
     Route: 048
     Dates: start: 20070626
  4. NEXIUM [Suspect]
     Indication: GASTROOESOPHAGEAL REFLUX DISEASE
     Route: 048
     Dates: start: 20070626
  5. NEXIUM [Suspect]
     Indication: GASTROOESOPHAGEAL REFLUX DISEASE
     Route: 048
     Dates: start: 20050114
  6. NEXIUM [Suspect]
     Indication: GASTROOESOPHAGEAL REFLUX DISEASE
     Route: 048
     Dates: start: 20050114
  7. OMEPRAZOLE [Suspect]
     Indication: GASTROOESOPHAGEAL REFLUX DISEASE
     Route: 048
     Dates: start: 20080807
  8. OMEPRAZOLE [Suspect]
     Indication: GASTROOESOPHAGEAL REFLUX DISEASE
     Route: 048
     Dates: start: 2008, end: 2013
  9. OMEPRAZOLE [Suspect]
     Indication: GASTROOESOPHAGEAL REFLUX DISEASE
     Route: 048
     Dates: start: 20080930
  10. PRILOSEC OTC [Suspect]
     Indication: GASTROOESOPHAGEAL REFLUX DISEASE
     Route: 048
     Dates: start: 1998
  11. PRILOSEC OTC [Suspect]
     Indication: GASTROOESOPHAGEAL REFLUX DISEASE
     Route: 048
     Dates: start: 2000, end: 2008
  12. ZANTAC/ RANITIDINE [Concomitant]
  13. GAVISCON [Concomitant]
     Dates: start: 1995
  14. TAGAMET [Concomitant]
  15. PREVACID [Concomitant]
     Indication: GASTROOESOPHAGEAL REFLUX DISEASE
  16. LORTAB [Concomitant]
     Dates: start: 2000, end: 2005
  17. METHADONE [Concomitant]
  18. MOBIC [Concomitant]
  19. NEUROTIN [Concomitant]
     Dates: start: 2005
  20. FLOMAX [Concomitant]
  21. METHIMAZOLE [Concomitant]
     Dates: start: 20070214
  22. LYRICA [Concomitant]
     Dates: start: 20070302
  23. PREDNISONE [Concomitant]
     Dates: start: 200907
  24. CYCLOBENZAPRINE [Concomitant]
     Dates: start: 20111026

REACTIONS (9)
  - Back disorder [Unknown]
  - Ankle fracture [Unknown]
  - Foot fracture [Unknown]
  - Bone disorder [Unknown]
  - Fall [Unknown]
  - Osteoporosis [Unknown]
  - Arthritis [Unknown]
  - Rheumatoid arthritis [Unknown]
  - Hyperparathyroidism [Unknown]
